FAERS Safety Report 5855080-3 (Version None)
Quarter: 2008Q3

REPORT INFORMATION
  Report Type: 
  Country: None (occurrence: None)
  Receive Date: 20080822
  Receipt Date: 20080623
  Transmission Date: 20090109
  Serious: No
  Sender: FDA-Public Use
  Company Number: US-ABBOTT-08P-163-0459586-00

PATIENT
  Sex: Female
  Weight: 77.18 kg

DRUGS (3)
  1. SYNTHROID [Suspect]
     Indication: HYPOTHYROIDISM
     Route: 048
     Dates: start: 20060101
  2. HORMONE PILL [Concomitant]
     Indication: DRUG USE FOR UNKNOWN INDICATION
     Route: 048
     Dates: start: 20030101
  3. PROGESTERONE [Concomitant]
     Indication: DRUG USE FOR UNKNOWN INDICATION
     Dosage: ONE APPLICATION PER MONTH
     Route: 061

REACTIONS (8)
  - BLOOD PRESSURE INCREASED [None]
  - FEELING COLD [None]
  - HEART RATE ABNORMAL [None]
  - HEART RATE DECREASED [None]
  - INFECTION PARASITIC [None]
  - MALAISE [None]
  - NAIL DISCOLOURATION [None]
  - RASH [None]
